FAERS Safety Report 9157756 (Version 1)
Quarter: 2013Q1

REPORT INFORMATION
  Report Type: Spontaneous
  Country: IT (occurrence: None)
  Receive Date: 20130211
  Receipt Date: 20130211
  Transmission Date: 20140127
  Serious: Yes (Other)
  Sender: FDA-Public Use
  Company Number: 1590784

PATIENT
  Age: 46 Year
  Sex: Female

DRUGS (2)
  1. (CARBOPLATIN) [Suspect]
     Indication: OVARIAN CANCER
     Dosage: CYCLICAL INTRAVENOUS (NOT OTHERWISE SPECIFIED)?
     Route: 042
     Dates: start: 20120909, end: 20121105
  2. CAELYX [Suspect]
     Indication: PRODUCT USED FOR UNKNOWN INDICATION
     Dosage: CYCLICAL INTRAVENOUS (NOT OTHERWISE SPECIFIED)?
     Route: 042
     Dates: start: 20120903, end: 20130131

REACTIONS (5)
  - Pruritus [None]
  - Abdominal pain [None]
  - Tachycardia [None]
  - Nausea [None]
  - Hypersensitivity [None]
